FAERS Safety Report 10305349 (Version 1)
Quarter: 2014Q3

REPORT INFORMATION
  Report Type: Spontaneous
  Country: NL (occurrence: None)
  Receive Date: 20140710
  Receipt Date: 20140710
  Transmission Date: 20150326
  Serious: Yes (Life-Threatening, Other)
  Sender: FDA-Public Use
  Company Number: 2014-NL-007315

PATIENT
  Sex: Female

DRUGS (3)
  1. XYREM [Suspect]
     Active Substance: SODIUM OXYBATE
     Indication: NARCOLEPSY
     Route: 048
     Dates: start: 201112, end: 20140525
  2. AMOXICILLIN. [Suspect]
     Active Substance: AMOXICILLIN
     Indication: INFECTION
     Route: 048
     Dates: start: 201405, end: 201405
  3. ERYTHROCINE [Suspect]
     Active Substance: ERYTHROMYCIN
     Indication: INFECTION
     Route: 048
     Dates: start: 201405, end: 201405

REACTIONS (11)
  - Drug interaction [None]
  - Faecal incontinence [None]
  - Vomiting [None]
  - Off label use [None]
  - Coma [None]
  - Cataplexy [None]
  - Tremor [None]
  - Headache [None]
  - Oral infection [None]
  - Inappropriate schedule of drug administration [None]
  - Hypersensitivity [None]

NARRATIVE: CASE EVENT DATE: 201405
